FAERS Safety Report 4761466-0 (Version None)
Quarter: 2005Q3

REPORT INFORMATION
  Report Type: 
  Country: None (occurrence: None)
  Receive Date: 20050902
  Receipt Date: 20050902
  Transmission Date: 20060218
  Serious: Yes (Disabling, Other)
  Sender: FDA-Public Use
  Company Number: None

PATIENT
  Age: 71 Year
  Sex: Male
  Weight: 79.3795 kg

DRUGS (2)
  1. AMIODARONE HCL 200 MG X 2 DAILY 4-23-03 FOR 8MO [Suspect]
     Indication: ARRHYTHMIA
     Dosage: 4-23-2003 8 MO 400 MG
     Dates: start: 20030423
  2. AMIODARONE HCL 100 MG X 2 DAILY [Suspect]
     Dosage: 1-14-04 12 MO 200 MG
     Dates: start: 20050103

REACTIONS (7)
  - CHRONIC SINUSITIS [None]
  - EMPHYSEMA [None]
  - INTERSTITIAL LUNG DISEASE [None]
  - PULMONARY FIBROSIS [None]
  - RESTRICTIVE PULMONARY DISEASE [None]
  - SOMNOLENCE [None]
  - THERAPEUTIC AGENT TOXICITY [None]
